FAERS Safety Report 8458038-3 (Version None)
Quarter: 2012Q2

REPORT INFORMATION
  Report Type: 
  Country: None (occurrence: None)
  Receive Date: 20120622
  Receipt Date: 20120613
  Transmission Date: 20120825
  Serious: Yes (Death)
  Sender: FDA-Public Use
  Company Number: JP-JNJFOC-20120514095

PATIENT
  Sex: Female
  Weight: 57 kg

DRUGS (2)
  1. ORTHO-NOVUM 1/35-21 [Suspect]
     Indication: MENORRHAGIA
     Route: 048
     Dates: start: 20080601, end: 20111201
  2. ORTHO-NOVUM 1/35-21 [Suspect]
     Indication: UTERINE LEIOMYOMA
     Route: 048
     Dates: start: 20080601, end: 20111201

REACTIONS (2)
  - INTRACRANIAL VENOUS SINUS THROMBOSIS [None]
  - OFF LABEL USE [None]
